FAERS Safety Report 23730928 (Version 1)
Quarter: 2024Q2

REPORT INFORMATION
  Report Type: Spontaneous
  Country: EG (occurrence: EG)
  Receive Date: 20240411
  Receipt Date: 20240411
  Transmission Date: 20240716
  Serious: Yes (Life-Threatening, Hospitalization, Disabling, Other)
  Sender: FDA-Public Use
  Company Number: EG-HIKMA PHARMACEUTICALS-EG-H14001-24-02816

PATIENT
  Age: 42 Year
  Sex: Female
  Weight: 62 kg

DRUGS (3)
  1. PACLITAXEL [Suspect]
     Active Substance: PACLITAXEL
     Dosage: 80 MG DILUTED IN 250 ML NORMAL SALINE OVER A TIME OF 1 HR
     Route: 041
     Dates: start: 20240213
  2. PACLITAXEL [Suspect]
     Active Substance: PACLITAXEL
     Dosage: 80 MG DILUTED IN 250 ML NORMAL SALINE OVER A TIME OF 1 HR
     Route: 041
     Dates: start: 20240229
  3. PACLITAXEL [Suspect]
     Active Substance: PACLITAXEL
     Indication: Breast cancer
     Dosage: 120 MG DILUTED IN 500 ML NORMAL SALINE OVER A TIME OF 90 MINS
     Route: 041
     Dates: start: 20231130

REACTIONS (3)
  - Neutropenia [Unknown]
  - Total lung capacity decreased [Recovered/Resolved]
  - Neuropathy peripheral [Not Recovered/Not Resolved]

NARRATIVE: CASE EVENT DATE: 20240208
